FAERS Safety Report 21587820 (Version 5)
Quarter: 2024Q3

REPORT INFORMATION
  Report Type: Report from Study
  Country: DE (occurrence: DE)
  Receive Date: 20221114
  Receipt Date: 20240709
  Transmission Date: 20241017
  Serious: No
  Sender: ROCHE
  Company Number: DE-ROCHE-2313768

PATIENT
  Age: 54 Year
  Sex: Male

DRUGS (11)
  1. OCREVUS [Suspect]
     Active Substance: OCRELIZUMAB
     Indication: Primary progressive multiple sclerosis
     Dosage: 600 MG IN 196 DAYS.
     Route: 042
     Dates: start: 20180706
  2. OCREVUS [Suspect]
     Active Substance: OCRELIZUMAB
     Route: 042
     Dates: start: 20190722
  3. OCREVUS [Suspect]
     Active Substance: OCRELIZUMAB
     Route: 042
     Dates: start: 20200120
  4. OCREVUS [Suspect]
     Active Substance: OCRELIZUMAB
     Route: 042
  5. AMANTADINE [Suspect]
     Active Substance: AMANTADINE
     Indication: Product used for unknown indication
     Route: 065
     Dates: start: 201810
  6. PANTOPRAZOLE SODIUM [Concomitant]
     Active Substance: PANTOPRAZOLE SODIUM
  7. METAMIZOLE [Concomitant]
     Active Substance: METAMIZOLE
     Dosage: AS RECQUIRED
  8. MIRABEGRON [Concomitant]
     Active Substance: MIRABEGRON
  9. BACLOFEN [Concomitant]
     Active Substance: BACLOFEN
  10. VIGANTOL [Concomitant]
  11. IBUPROFEN [Concomitant]
     Active Substance: IBUPROFEN
     Dosage: AS RECQUIRED

REACTIONS (16)
  - Peroneal nerve palsy [Not Recovered/Not Resolved]
  - Hypoaesthesia [Not Recovered/Not Resolved]
  - Fatigue [Recovering/Resolving]
  - Asthenia [Not Recovered/Not Resolved]
  - Head discomfort [Not Recovered/Not Resolved]
  - Formication [Recovering/Resolving]
  - Faeces hard [Recovering/Resolving]
  - Pain [Recovered/Resolved]
  - Memory impairment [Not Recovered/Not Resolved]
  - Muscle spasticity [Not Recovered/Not Resolved]
  - Gait disturbance [Not Recovered/Not Resolved]
  - COVID-19 [Recovered/Resolved]
  - Cough [Recovered/Resolved]
  - Nasopharyngitis [Recovered/Resolved]
  - Listless [Recovered/Resolved]
  - Foreign body in throat [Not Recovered/Not Resolved]

NARRATIVE: CASE EVENT DATE: 20181001
